FAERS Safety Report 10329887 (Version 2)
Quarter: 2014Q3

REPORT INFORMATION
  Report Type: Spontaneous
  Country: US (occurrence: US)
  Receive Date: 20140721
  Receipt Date: 20140909
  Transmission Date: 20150326
  Serious: Yes (Other)
  Sender: FDA-Public Use
  Company Number: US-GLAXOSMITHKLINE-A1072028A

PATIENT
  Age: 77 Year
  Sex: Male
  Weight: 92.3 kg

DRUGS (8)
  1. LISINOPRIL. [Concomitant]
     Active Substance: LISINOPRIL
  2. CRESTOR [Concomitant]
     Active Substance: ROSUVASTATIN CALCIUM
  3. GLUCOSAMINE [Concomitant]
     Active Substance: GLUCOSAMINE
  4. METOPROLOL [Concomitant]
     Active Substance: METOPROLOL
  5. ASPIRIN LOW DOSE [Concomitant]
     Active Substance: ASPIRIN
  6. VOTRIENT [Suspect]
     Active Substance: PAZOPANIB HYDROCHLORIDE
     Indication: SPINDLE CELL SARCOMA
     Dosage: 800MG PER DAY
     Route: 048
     Dates: start: 20140117
  7. FISH OIL [Concomitant]
     Active Substance: FISH OIL
  8. VIAGRA [Concomitant]
     Active Substance: SILDENAFIL CITRATE

REACTIONS (22)
  - Oedema [Unknown]
  - Rash [Unknown]
  - Back pain [Unknown]
  - Cough [Unknown]
  - Fatigue [Recovering/Resolving]
  - Decreased activity [Unknown]
  - Lymphadenopathy [Unknown]
  - Proctalgia [Unknown]
  - Sinus bradycardia [Unknown]
  - Pyrexia [Unknown]
  - Heart rate abnormal [Unknown]
  - Decreased appetite [Unknown]
  - Platelet count decreased [Unknown]
  - Defaecation urgency [Recovering/Resolving]
  - Chest pain [Unknown]
  - Haemorrhagic diathesis [Unknown]
  - Abdominal distension [Unknown]
  - Metastases to liver [Unknown]
  - Abdominal pain [Unknown]
  - Diarrhoea [Recovering/Resolving]
  - Aspartate aminotransferase increased [Recovered/Resolved]
  - Alanine aminotransferase increased [Recovered/Resolved]

NARRATIVE: CASE EVENT DATE: 20140131
